FAERS Safety Report 19956063 (Version 2)
Quarter: 2021Q4

REPORT INFORMATION
  Report Type: Spontaneous
  Country: MY (occurrence: MY)
  Receive Date: 20211014
  Receipt Date: 20211115
  Transmission Date: 20220303
  Serious: Yes (Death, Other)
  Sender: FDA-Public Use
  Company Number: MY-BOEHRINGERINGELHEIM-2021-BI-128386

PATIENT
  Age: 59 Year
  Sex: Male
  Weight: 60 kg

DRUGS (2)
  1. OFEV [Suspect]
     Active Substance: NINTEDANIB
     Indication: Organising pneumonia
     Dosage: ROUTE OF ADMINISTRATION: FEEDING TUBE
     Route: 048
     Dates: start: 20210915, end: 20210922
  2. OFEV [Suspect]
     Active Substance: NINTEDANIB
     Indication: COVID-19

REACTIONS (5)
  - Pneumonia [Fatal]
  - Sepsis [Fatal]
  - Off label use [Not Recovered/Not Resolved]
  - Pyrexia [Recovered/Resolved]
  - Wrong technique in product usage process [Recovered/Resolved]

NARRATIVE: CASE EVENT DATE: 20210901
